FAERS Safety Report 4779725-4 (Version None)
Quarter: 2005Q3

REPORT INFORMATION
  Report Type: 
  Country: None (occurrence: None)
  Receive Date: 20050914
  Receipt Date: 20041012
  Transmission Date: 20060218
  Serious: Yes (Hospitalization)
  Sender: FDA-Public Use
  Company Number: 163-20785-04100368

PATIENT
  Age: 67 Year
  Sex: Male

DRUGS (7)
  1. THALOMID [Suspect]
     Indication: MULTIPLE MYELOMA
     Dosage: 50 MG DAY 1, 100 MG DAY 2, 150 MG DAY 3 AND 2 DAY 5, ORAL
     Route: 048
     Dates: start: 20040810, end: 20040814
  2. DEXAMETHASONE [Suspect]
     Indication: MULTIPLE MYELOMA
     Dosage: 40 MG, DAILY, ORAL
     Route: 048
     Dates: start: 20040810, end: 20040813
  3. CISPLATIN [Suspect]
     Indication: MULTIPLE MYELOMA
     Dosage: 20 MG, QD, INTRAVENOUS
     Route: 042
     Dates: start: 20040910, end: 20040813
  4. ADRIAMYCIN PFS [Suspect]
     Indication: MULTIPLE MYELOMA
     Dosage: 20 MG, QD, INTRAVENOUS
     Route: 042
     Dates: start: 20040810, end: 20040813
  5. CYCLOPHOSPHAMIDE [Suspect]
     Indication: MULTIPLE MYELOMA
     Dosage: 800 MG, QD, INTRAVENOUS
     Route: 042
     Dates: start: 20040810, end: 20040813
  6. ETOPOSIDE [Suspect]
     Indication: MULTIPLE MYELOMA
     Dosage: 80 MG, QD, INTRAVENOUS
     Route: 042
     Dates: start: 20040810, end: 20040813
  7. BORTEZOMIB (BORTEZOMIB) [Suspect]
     Indication: MULTIPLE MYELOMA
     Dosage: 2 MG, DAILY, INTRAVENOUS
     Route: 042
     Dates: start: 20040807, end: 20040817

REACTIONS (2)
  - CHEST PAIN [None]
  - CORONARY ARTERY OCCLUSION [None]
